FAERS Safety Report 25812366 (Version 1)
Quarter: 2025Q3

REPORT INFORMATION
  Report Type: Report from Study
  Country: US (occurrence: US)
  Receive Date: 20250917
  Receipt Date: 20250917
  Transmission Date: 20251021
  Serious: Yes (Hospitalization, Other)
  Sender: SANOFI AVENTIS
  Company Number: US-SA-2025SA276445

PATIENT
  Age: 70 Year
  Sex: Female

DRUGS (1)
  1. DUPILUMAB [Suspect]
     Active Substance: DUPILUMAB
     Indication: Dermatitis atopic
     Dosage: 300 MG, QW
     Route: 058

REACTIONS (7)
  - Urosepsis [Unknown]
  - Asthma [Unknown]
  - Rebound effect [Unknown]
  - Sleep disorder due to a general medical condition [Unknown]
  - Inappropriate schedule of product administration [Unknown]
  - Road traffic accident [Unknown]
  - Traumatic pain [Unknown]

NARRATIVE: CASE EVENT DATE: 20250101
